FAERS Safety Report 25405455 (Version 4)
Quarter: 2025Q3

REPORT INFORMATION
  Report Type: Report from Study
  Country: US (occurrence: US)
  Receive Date: 20250606
  Receipt Date: 20250820
  Transmission Date: 20251020
  Serious: Yes (Hospitalization, Other)
  Sender: INSMED
  Company Number: US-INSMED, INC.-2025-02056-US

PATIENT
  Sex: Female

DRUGS (2)
  1. ARIKAYCE [Suspect]
     Active Substance: AMIKACIN
     Indication: Mycobacterial infection
     Dosage: 590 MILLIGRAM, QD
     Route: 055
     Dates: start: 202505, end: 2025
  2. DUONEB [Concomitant]
     Active Substance: ALBUTEROL SULFATE\IPRATROPIUM BROMIDE
     Indication: Product used for unknown indication
     Route: 065

REACTIONS (11)
  - Hospitalisation [Unknown]
  - Hospitalisation [Unknown]
  - Dyspnoea [Recovering/Resolving]
  - Increased viscosity of bronchial secretion [Recovering/Resolving]
  - Sputum retention [Recovering/Resolving]
  - Eating disorder [Not Recovered/Not Resolved]
  - Nausea [Not Recovered/Not Resolved]
  - Dysphonia [Not Recovered/Not Resolved]
  - Headache [Not Recovered/Not Resolved]
  - Drug hypersensitivity [Unknown]
  - Therapy interrupted [Unknown]

NARRATIVE: CASE EVENT DATE: 20250101
